FAERS Safety Report 17077171 (Version 2)
Quarter: 2019Q4

REPORT INFORMATION
  Report Type: Other
  Country: US (occurrence: US)
  Receive Date: 20191126
  Receipt Date: 20191202
  Transmission Date: 20200122
  Serious: Yes (Life-Threatening, Hospitalization, Other)
  Sender: FDA-Public Use
  Company Number: US-C B FLEET CO INC-201911-US-003734

PATIENT
  Age: 42 Year
  Sex: Male

DRUGS (2)
  1. ACETAMINOPHEN. [Suspect]
     Active Substance: ACETAMINOPHEN
     Indication: PRODUCT USED FOR UNKNOWN INDICATION
     Dosage: 27G
     Route: 048
  2. ALCOHOL. [Concomitant]
     Active Substance: ALCOHOL

REACTIONS (4)
  - Renal injury [Recovered/Resolved]
  - Haemolysis [Recovered/Resolved]
  - Liver injury [Recovered/Resolved]
  - Overdose [None]
